FAERS Safety Report 11031114 (Version 1)
Quarter: 2015Q2

REPORT INFORMATION
  Report Type: Spontaneous
  Country: US (occurrence: US)
  Receive Date: 20150415
  Receipt Date: 20150415
  Transmission Date: 20150821
  Serious: No
  Sender: FDA-Public Use
  Company Number: US-ASTRAZENECA-2015SE05619

PATIENT
  Age: 60 Year
  Sex: Male

DRUGS (1)
  1. PRILOSEC OTC [Suspect]
     Active Substance: OMEPRAZOLE MAGNESIUM
     Indication: DYSPEPSIA
     Dosage: 1 TABLET COMPLETED 14 DAY CYCLE, WAITED A COUPLE OF DAYS, AND DID ANOTHER AND THEN AFTER THAT CYLCE
     Route: 048
     Dates: end: 20150108

REACTIONS (2)
  - Erectile dysfunction [Unknown]
  - Inappropriate schedule of drug administration [Unknown]
